FAERS Safety Report 8959811 (Version 1)
Quarter: 2012Q4

REPORT INFORMATION
  Report Type: 
  Country: US (occurrence: US)
  Receive Date: 20121212
  Receipt Date: 20121212
  Transmission Date: 20130627
  Serious: No
  Sender: FDA-Public Use
  Company Number: US-MYLANLABS-2011S1023737

PATIENT
  Age: 70 Year
  Sex: Female

DRUGS (3)
  1. GLIMEPIRIDE [Suspect]
  2. METFORMIN [Suspect]
  3. VICTOZA [Suspect]

REACTIONS (1)
  - Blood glucose increased [Not Recovered/Not Resolved]
